FAERS Safety Report 18520789 (Version 1)
Quarter: 2020Q4

REPORT INFORMATION
  Report Type: Spontaneous
  Country: US (occurrence: US)
  Receive Date: 20201119
  Receipt Date: 20201119
  Transmission Date: 20210114
  Serious: No
  Sender: FDA-Public Use
  Company Number: US-SA-2020SA322991

PATIENT

DRUGS (2)
  1. LANTUS SOLOSTAR [Suspect]
     Active Substance: INSULIN GLARGINE
     Indication: TYPE 2 DIABETES MELLITUS
     Dosage: 10 IU, QD
     Route: 065
     Dates: start: 201908
  2. GLIPIZIDE. [Concomitant]
     Active Substance: GLIPIZIDE
     Dosage: 10 MG, BID (IN MORNING AND EVENING)
     Route: 065

REACTIONS (2)
  - Product storage error [Unknown]
  - Nail discolouration [Not Recovered/Not Resolved]

NARRATIVE: CASE EVENT DATE: 202009
